FAERS Safety Report 9492136 (Version 1)
Quarter: 2013Q3

REPORT INFORMATION
  Report Type: Spontaneous
  Country: US (occurrence: US)
  Receive Date: 20130830
  Receipt Date: 20130830
  Transmission Date: 20140515
  Serious: Yes (Other)
  Sender: FDA-Public Use
  Company Number: US-JNJFOC-20130809810

PATIENT
  Age: 42 Year
  Sex: Female
  Weight: 48.99 kg

DRUGS (2)
  1. CHILDREN^S BENADRYL ALLERGY CHERRY LIQUID [Suspect]
     Indication: DERMATITIS CONTACT
     Dosage: 2 TEASPOON
     Route: 048
     Dates: start: 20130630, end: 20130811
  2. PREDNISONE [Concomitant]
     Indication: HYPERSENSITIVITY
     Route: 065

REACTIONS (4)
  - Drug withdrawal syndrome [Not Recovered/Not Resolved]
  - Palpitations [Not Recovered/Not Resolved]
  - Nausea [Not Recovered/Not Resolved]
  - Dizziness [Not Recovered/Not Resolved]
